FAERS Safety Report 11274525 (Version 1)
Quarter: 2015Q3

REPORT INFORMATION
  Report Type: Report from Study
  Country: US (occurrence: US)
  Receive Date: 20150715
  Receipt Date: 20150715
  Transmission Date: 20151125
  Serious: No
  Sender: FDA-Public Use
  Company Number: US-CELGENEUS-USA-2015062439

PATIENT
  Age: 73 Year
  Sex: Female

DRUGS (3)
  1. STEROID [Concomitant]
     Active Substance: UNSPECIFIED INGREDIENT
     Indication: PLASMA CELL MYELOMA
     Route: 065
  2. THALOMID [Suspect]
     Active Substance: THALIDOMIDE
     Indication: PLASMA CELL MYELOMA
     Route: 048
  3. AREDIA [Concomitant]
     Active Substance: PAMIDRONATE DISODIUM
     Indication: PRODUCT USED FOR UNKNOWN INDICATION
     Route: 065

REACTIONS (3)
  - Osteoporosis [Unknown]
  - Neuropathy peripheral [Unknown]
  - Hypothyroidism [Unknown]
